FAERS Safety Report 10281670 (Version 1)
Quarter: 2014Q3

REPORT INFORMATION
  Report Type: Spontaneous
  Country: US (occurrence: US)
  Receive Date: 20140707
  Receipt Date: 20140707
  Transmission Date: 20150326
  Serious: No
  Sender: FDA-Public Use
  Company Number: US-PFIZER INC-2014185363

PATIENT
  Age: 68 Year
  Sex: Female
  Weight: 55 kg

DRUGS (1)
  1. FLECTOR [Suspect]
     Active Substance: DICLOFENAC EPOLAMINE
     Indication: ARTHRITIS
     Dosage: UNK, AS NEEDED
     Dates: end: 2014

REACTIONS (3)
  - Skin burning sensation [Unknown]
  - Skin irritation [Unknown]
  - Bursitis [Unknown]

NARRATIVE: CASE EVENT DATE: 2014
